FAERS Safety Report 24928018 (Version 1)
Quarter: 2025Q1

REPORT INFORMATION
  Report Type: Spontaneous
  Country: JP (occurrence: JP)
  Receive Date: 20250205
  Receipt Date: 20250205
  Transmission Date: 20250408
  Serious: Yes (Hospitalization)
  Sender: AKEBIA THERAPEUTICS
  Company Number: JP-MTPC-MTPC2025-0001961

PATIENT
  Age: 92 Year
  Sex: Male

DRUGS (1)
  1. VADADUSTAT [Suspect]
     Active Substance: VADADUSTAT
     Indication: Product used for unknown indication
     Route: 048

REACTIONS (1)
  - Insomnia [Unknown]
